FAERS Safety Report 4595951-1 (Version None)
Quarter: 2005Q1

REPORT INFORMATION
  Report Type: 
  Country: None (occurrence: None)
  Receive Date: 20050224
  Receipt Date: 20050204
  Transmission Date: 20050727
  Serious: Yes (Hospitalization, Other)
  Sender: FDA-Public Use
  Company Number: DE_050215211

PATIENT
  Age: 53 Year
  Sex: Male

DRUGS (6)
  1. ZYPREXA [Suspect]
     Indication: DEPRESSION
     Dosage: 30MG/1 DAY
     Dates: start: 20020415, end: 20020530
  2. LEVOTHYROXINE SODIUM [Concomitant]
  3. RISPERDAL [Concomitant]
  4. ARKINETON RETARD (BEPIRIDEN HYDROCHLORIDE) [Concomitant]
  5. CLOZAPINE [Concomitant]
  6. LORAZEPAM [Concomitant]

REACTIONS (6)
  - ATRIAL FIBRILLATION [None]
  - BODY TEMPERATURE FLUCTUATION [None]
  - C-REACTIVE PROTEIN INCREASED [None]
  - CARDIAC FAILURE [None]
  - MYOCARDITIS [None]
  - PRESCRIBED OVERDOSE [None]
